FAERS Safety Report 14468234 (Version 3)
Quarter: 2018Q1

REPORT INFORMATION
  Report Type: Spontaneous
  Country: CN (occurrence: CN)
  Receive Date: 20180131
  Receipt Date: 20180306
  Transmission Date: 20180509
  Serious: Yes (Hospitalization)
  Sender: FDA-Public Use
  Company Number: CN-ASTRAZENECA-2018SE05799

PATIENT
  Age: 36 Year
  Sex: Female
  Weight: 55 kg

DRUGS (7)
  1. METHOXYPHENAMINE [Concomitant]
     Active Substance: METHOXYPHENAMINE
  2. PULMICORT RESPULES [Suspect]
     Active Substance: BUDESONIDE
     Route: 055
  3. BRICANYL [Suspect]
     Active Substance: TERBUTALINE SULFATE
     Route: 055
  4. MONTELUKAST SODIUM. [Concomitant]
     Active Substance: MONTELUKAST SODIUM
  5. SYMBICORT [Suspect]
     Active Substance: BUDESONIDE\FORMOTEROL FUMARATE DIHYDRATE
     Indication: DYSPNOEA
     Dosage: 160UG/4.5UG TWO INHALATIONS A DAY
     Route: 055
     Dates: end: 20171111
  6. SYMBICORT [Suspect]
     Active Substance: BUDESONIDE\FORMOTEROL FUMARATE DIHYDRATE
     Indication: DYSPNOEA
     Dosage: 160UG/4.5UG TWO INHALATIONS A DAY
     Route: 055
     Dates: start: 20170122
  7. SYMBICORT [Suspect]
     Active Substance: BUDESONIDE\FORMOTEROL FUMARATE DIHYDRATE
     Indication: DYSPNOEA
     Dosage: 160UG, FOUR INHALATIONS A DAY
     Route: 055
     Dates: start: 201703

REACTIONS (5)
  - Dyspnoea [Not Recovered/Not Resolved]
  - Discomfort [Unknown]
  - Mental disorder [Unknown]
  - Chest discomfort [Not Recovered/Not Resolved]
  - Drug ineffective [Unknown]

NARRATIVE: CASE EVENT DATE: 201705
